FAERS Safety Report 6469231-3 (Version None)
Quarter: 2009Q4

REPORT INFORMATION
  Report Type: 
  Country: None (occurrence: None)
  Receive Date: 20091203
  Receipt Date: 20080724
  Transmission Date: 20100525
  Serious: Yes (Hospitalization)
  Sender: FDA-Public Use
  Company Number: JP-ELI_LILLY_AND_COMPANY-JP200705004331

PATIENT
  Sex: Male
  Weight: 53.7 kg

DRUGS (8)
  1. PEMETREXED [Suspect]
     Indication: PLEURAL MESOTHELIOMA MALIGNANT
     Dosage: 500 MG/M2, OTHER
     Route: 042
     Dates: start: 20070410, end: 20070410
  2. CISPLATIN [Suspect]
     Indication: PLEURAL MESOTHELIOMA MALIGNANT
     Dosage: 75 MG/M2, OTHER
     Route: 042
     Dates: start: 20070410, end: 20070410
  3. FOLIC ACID [Concomitant]
     Dosage: 0.5 MG, DAILY (1/D)
     Route: 048
     Dates: start: 20070403, end: 20070618
  4. VITAMIN B-12 [Concomitant]
     Dosage: 1 MG, UNK
     Route: 030
     Dates: start: 20070403, end: 20070403
  5. OMEPRAL [Concomitant]
     Indication: PROPHYLAXIS
     Dosage: 20 MG, DAILY (1/D)
     Route: 048
  6. MAGMITT [Concomitant]
     Indication: PROPHYLAXIS
     Dosage: 1 G, DAILY (1/D)
     Route: 048
  7. LOXONIN [Concomitant]
     Indication: PROPHYLAXIS
     Dosage: 180 MG, DAILY (1/D)
     Route: 048
  8. SELBEX [Concomitant]
     Indication: PROPHYLAXIS
     Dosage: 150 MG, DAILY (1/D)
     Route: 048

REACTIONS (1)
  - INTERSTITIAL LUNG DISEASE [None]
